FAERS Safety Report 5040305-7 (Version None)
Quarter: 2006Q2

REPORT INFORMATION
  Report Type: 
  Country: None (occurrence: None)
  Receive Date: 20060630
  Receipt Date: 20060413
  Transmission Date: 20061013
  Serious: No
  Sender: FDA-Public Use
  Company Number: US-BRISTOL-MYERS SQUIBB COMPANY-13347505

PATIENT
  Sex: Male

DRUGS (1)
  1. ORENCIA [Suspect]
     Route: 042
     Dates: start: 20060411

REACTIONS (1)
  - DYSPNOEA [None]
